FAERS Safety Report 6418846-7 (Version None)
Quarter: 2009Q4

REPORT INFORMATION
  Report Type: 
  Country: None (occurrence: None)
  Receive Date: 20091029
  Receipt Date: 20091022
  Transmission Date: 20100525
  Serious: Yes (Hospitalization)
  Sender: FDA-Public Use
  Company Number: US-BIOGENIDEC-2009BI034215

PATIENT
  Age: 59 Year
  Sex: Female

DRUGS (2)
  1. TYSABRI [Suspect]
     Indication: MULTIPLE SCLEROSIS
     Route: 042
     Dates: start: 20071114, end: 20080424
  2. TYSABRI [Suspect]
     Route: 042
     Dates: start: 20090318

REACTIONS (5)
  - BLADDER DISORDER [None]
  - HYPERREFLEXIA [None]
  - LIVER FUNCTION TEST ABNORMAL [None]
  - MUSCLE SPASTICITY [None]
  - URINARY RETENTION [None]
